FAERS Safety Report 6907853-3 (Version None)
Quarter: 2010Q3

REPORT INFORMATION
  Report Type: 
  Country: None (occurrence: None)
  Receive Date: 20100712
  Receipt Date: 20100512
  Transmission Date: 20110219
  Serious: No
  Sender: FDA-Public Use
  Company Number: US-000258

PATIENT
  Sex: Female
  Weight: 59.8748 kg

DRUGS (5)
  1. KUVAN [Suspect]
     Indication: PHENYLKETONURIA
     Dosage: (1100 MG QD ORAL)
     Route: 048
  2. TYROSINE [Concomitant]
  3. NUTRIENTS WITHOUT PHENYLALANINE [Concomitant]
  4. FLEXI-TEN BARS [Concomitant]
  5. FLEXI-TEN [Concomitant]

REACTIONS (2)
  - ABDOMINAL PAIN UPPER [None]
  - FATIGUE [None]
